FAERS Safety Report 16182292 (Version 4)
Quarter: 2019Q2

REPORT INFORMATION
  Report Type: Spontaneous
  Country: CA (occurrence: CA)
  Receive Date: 20190411
  Receipt Date: 20190619
  Transmission Date: 20190711
  Serious: Yes (Other)
  Sender: FDA-Public Use
  Company Number: CA-CELLTRION INC.-2017CA017596

PATIENT

DRUGS (15)
  1. INFLECTRA [Suspect]
     Active Substance: INFLIXIMAB-DYYB
     Dosage: 410 MG, EVERY 6 WEEKS
     Dates: start: 20180123, end: 20181106
  2. INFLECTRA [Suspect]
     Active Substance: INFLIXIMAB-DYYB
     Dosage: UNK
     Route: 042
     Dates: start: 20180814, end: 20181106
  3. INFLECTRA [Suspect]
     Active Substance: INFLIXIMAB-DYYB
     Dosage: 415 MG, EVERY 6 WEEKS
     Route: 042
     Dates: start: 20190605
  4. DIMENHYDRINATE. [Concomitant]
     Active Substance: DIMENHYDRINATE
     Indication: PREMEDICATION
     Dosage: 50 MG, UNK
     Route: 048
     Dates: start: 20180703
  5. INFLECTRA [Suspect]
     Active Substance: INFLIXIMAB-DYYB
     Indication: COLITIS ULCERATIVE
     Dosage: 5 MG/KG, EVERY 6 WEEKS
     Route: 042
     Dates: start: 20161027, end: 20171212
  6. INFLECTRA [Suspect]
     Active Substance: INFLIXIMAB-DYYB
     Dosage: UNK
     Route: 042
     Dates: start: 20180703
  7. HYDROCORTISONE. [Concomitant]
     Active Substance: HYDROCORTISONE
     Indication: PREMEDICATION
     Dosage: 100 (UNIT UNKNOWN)
     Route: 042
     Dates: start: 20180703
  8. INFLECTRA [Suspect]
     Active Substance: INFLIXIMAB-DYYB
     Dosage: 400 MG (4.88 MG/KG), UNK
     Route: 042
     Dates: start: 20171212, end: 20171212
  9. ASACOL [Concomitant]
     Active Substance: MESALAMINE
     Dosage: UNK, 2X/DAY (2-3 TABLETS)
     Route: 048
     Dates: start: 201305
  10. CORTIMENT [Concomitant]
     Indication: PREMEDICATION
     Dosage: 9 MG, 1X/DAY
     Route: 048
     Dates: start: 201308
  11. INFLECTRA [Suspect]
     Active Substance: INFLIXIMAB-DYYB
     Dosage: 410 MG, EVERY 6 WEEKS
     Route: 042
     Dates: start: 20180227
  12. INFLECTRA [Suspect]
     Active Substance: INFLIXIMAB-DYYB
     Dosage: 410 MG, EVERY 6 WEEKS
     Route: 042
     Dates: start: 20181218
  13. INFLECTRA [Suspect]
     Active Substance: INFLIXIMAB-DYYB
     Dosage: 415 MG, EVERY 6 WEEKS
     Route: 042
     Dates: start: 20190423
  14. INFLECTRA [Suspect]
     Active Substance: INFLIXIMAB-DYYB
     Dosage: 415 MG, EVERY 6 WEEKS
     Route: 042
     Dates: start: 20190129
  15. INFLECTRA [Suspect]
     Active Substance: INFLIXIMAB-DYYB
     Dosage: 415 MG, EVERY 6 WEEKS
     Route: 042
     Dates: start: 20190312

REACTIONS (4)
  - Incorrect dose administered [Unknown]
  - Tooth impacted [Unknown]
  - Condition aggravated [Not Recovered/Not Resolved]
  - Heart rate irregular [Unknown]

NARRATIVE: CASE EVENT DATE: 20171212
